FAERS Safety Report 6038606-9 (Version None)
Quarter: 2009Q1

REPORT INFORMATION
  Report Type: 
  Country: None (occurrence: None)
  Receive Date: 20090115
  Receipt Date: 20090112
  Transmission Date: 20090719
  Serious: Yes (Death)
  Sender: FDA-Public Use
  Company Number: Z0000646A

PATIENT
  Age: 76 Year
  Sex: Female
  Weight: 62 kg

DRUGS (2)
  1. PAZOPANIB [Suspect]
     Indication: INFLAMMATORY CARCINOMA OF THE BREAST
     Dosage: 800MG PER DAY
     Route: 048
     Dates: start: 20081112
  2. LAPATINIB [Suspect]
     Indication: INFLAMMATORY CARCINOMA OF THE BREAST
     Dosage: 1500MG PER DAY
     Route: 048
     Dates: start: 20081112

REACTIONS (2)
  - ASTHENIA [None]
  - SUDDEN DEATH [None]
